FAERS Safety Report 24391315 (Version 2)
Quarter: 2025Q3

REPORT INFORMATION
  Report Type: Report from Study
  Country: US (occurrence: US)
  Receive Date: 20241003
  Receipt Date: 20250810
  Transmission Date: 20251020
  Serious: Yes (Other)
  Sender: ALEXION PHARMACEUTICALS
  Company Number: US-AstraZeneca-CH-00714685A

PATIENT
  Sex: Female

DRUGS (1)
  1. SELUMETINIB [Suspect]
     Active Substance: SELUMETINIB
     Route: 065

REACTIONS (9)
  - Haematochezia [Not Recovered/Not Resolved]
  - Haemorrhage [Recovering/Resolving]
  - Abdominal pain upper [Recovering/Resolving]
  - Ear infection [Unknown]
  - Nose deformity [Unknown]
  - Abdominal pain upper [Unknown]
  - Diarrhoea [Recovering/Resolving]
  - Constipation [Recovering/Resolving]
  - Abdominal distension [Unknown]
